FAERS Safety Report 24075079 (Version 4)
Quarter: 2024Q3

REPORT INFORMATION
  Report Type: Spontaneous
  Country: US (occurrence: US)
  Receive Date: 20240710
  Receipt Date: 20240730
  Transmission Date: 20241016
  Serious: Yes (Hospitalization, Other)
  Sender: UNITED THERAPEUTICS
  Company Number: US-UNITED THERAPEUTICS-UNT-2024-020890

PATIENT
  Sex: Female

DRUGS (19)
  1. ORENITRAM [Suspect]
     Active Substance: TREPROSTINIL
     Indication: Pulmonary arterial hypertension
     Dosage: 0.125 MG, TID
     Dates: start: 2024
  2. ORENITRAM [Suspect]
     Active Substance: TREPROSTINIL
     Dosage: UNK
  3. ORENITRAM [Suspect]
     Active Substance: TREPROSTINIL
     Indication: Pulmonary arterial hypertension
     Dosage: UNK
  4. ADEMPAS [Concomitant]
     Active Substance: RIOCIGUAT
     Indication: Pulmonary arterial hypertension
     Dosage: 2 MG, BID
  5. LEVOTHYROXINE [Concomitant]
     Active Substance: LEVOTHYROXINE\LEVOTHYROXINE SODIUM
     Indication: Hypothyroidism
     Dosage: 200 ?G, QD
  6. HYDROXYCHLOROQUINE [Concomitant]
     Active Substance: HYDROXYCHLOROQUINE
     Indication: Rheumatoid arthritis
     Dosage: 200 MG, BID
  7. BUDESONIDE [Concomitant]
     Active Substance: BUDESONIDE
     Indication: Cardiac failure
     Dosage: 1 MG, BID
  8. BUDESONIDE [Concomitant]
     Active Substance: BUDESONIDE
     Indication: Hypertension
  9. ELIQUIS [Concomitant]
     Active Substance: APIXABAN
     Indication: Thrombosis prophylaxis
     Dosage: 5 MG, BID
  10. CARTIA XT [Concomitant]
     Active Substance: DILTIAZEM HYDROCHLORIDE
     Indication: Hypertension
     Dosage: 120 MG, QD
  11. CARTIA XT [Concomitant]
     Active Substance: DILTIAZEM HYDROCHLORIDE
     Indication: Cardiac failure
  12. ESCITALOPRAM [Concomitant]
     Active Substance: ESCITALOPRAM OXALATE
     Indication: Depression
     Dosage: 20 MG, QD
  13. ACETAZOLAMIDE [Concomitant]
     Active Substance: ACETAZOLAMIDE
     Indication: Cardiac failure
     Dosage: 125 MG, (ON MONDAY, WEDNESDAY AND FRIDAY) Q3WK
  14. SPIRONOLACTONE [Concomitant]
     Active Substance: SPIRONOLACTONE
     Indication: Cardiac failure
     Dosage: 25 MG, QD
  15. LORAZEPAM [Concomitant]
     Active Substance: LORAZEPAM
     Indication: Anxiety
     Dosage: 0.5 MG, BID, PRN
  16. MIDODRINE [Concomitant]
     Active Substance: MIDODRINE
     Indication: Orthostatic hypertension
     Dosage: 5 MG, QD
  17. ASPIRIN [Concomitant]
     Active Substance: ASPIRIN
     Indication: Cardiovascular disorder
     Dosage: 81 MG, QD
  18. VENTOLIN [Concomitant]
     Active Substance: ALBUTEROL SULFATE
     Indication: Pulmonary arterial hypertension
     Dosage: 2 PUFFS, QD, PRN
  19. OXYGEN [Concomitant]
     Active Substance: OXYGEN
     Indication: Pulmonary arterial hypertension
     Dosage: 3 L (NASAL CANULA), DAILY

REACTIONS (7)
  - Fall [Recovered/Resolved with Sequelae]
  - Upper limb fracture [Not Recovered/Not Resolved]
  - Nausea [Unknown]
  - Dyspepsia [Unknown]
  - Fluid retention [Unknown]
  - Heart rate decreased [Unknown]
  - Chills [Unknown]

NARRATIVE: CASE EVENT DATE: 20240101
